FAERS Safety Report 6870167-4 (Version None)
Quarter: 2010Q3

REPORT INFORMATION
  Report Type: 
  Country: None (occurrence: None)
  Receive Date: 20100721
  Receipt Date: 20100709
  Transmission Date: 20110219
  Serious: Yes (Other)
  Sender: FDA-Public Use
  Company Number: B0665827A

PATIENT
  Age: 30 Year
  Sex: Male

DRUGS (3)
  1. ABACAVIR SULFATE [Suspect]
     Indication: HIV INFECTION
  2. AMPRENAVIR (FORMULATION UNKNOWN) (GENERIC) (AMPRENAVIR) [Suspect]
     Indication: HIV INFECTION
  3. STAVUDINE [Suspect]
     Indication: HIV INFECTION

REACTIONS (1)
  - PROGRESSIVE MULTIFOCAL LEUKOENCEPHALOPATHY [None]
